FAERS Safety Report 7190851-5 (Version None)
Quarter: 2010Q4

REPORT INFORMATION
  Report Type: 
  Country: None (occurrence: None)
  Receive Date: 20101221
  Receipt Date: 20101221
  Transmission Date: 20110411
  Serious: No
  Sender: FDA-Public Use
  Company Number: None

PATIENT
  Age: 24 Year
  Sex: Male
  Weight: 96.6162 kg

DRUGS (1)
  1. PROPECIA [Suspect]
     Indication: ANDROGENETIC ALOPECIA
     Dosage: 1 MG 1 PER DAY PO
     Route: 048
     Dates: start: 20100122, end: 20100226

REACTIONS (32)
  - ANHEDONIA [None]
  - ANXIETY [None]
  - ARTHRALGIA [None]
  - ASTHENIA [None]
  - BLUNTED AFFECT [None]
  - COGNITIVE DISORDER [None]
  - CONFUSIONAL STATE [None]
  - DEPRESSED MOOD [None]
  - DEPRESSION [None]
  - EJACULATION FAILURE [None]
  - EMOTIONAL DISORDER [None]
  - ERECTILE DYSFUNCTION [None]
  - FAT TISSUE INCREASED [None]
  - FLAT AFFECT [None]
  - GENITAL PAIN [None]
  - HYPOAESTHESIA [None]
  - LOSS OF LIBIDO [None]
  - MEMORY IMPAIRMENT [None]
  - MENTAL DISORDER [None]
  - MOBILITY DECREASED [None]
  - MUSCLE ATROPHY [None]
  - MUSCULOSKELETAL DISORDER [None]
  - MYALGIA [None]
  - ORGASM ABNORMAL [None]
  - PAIN [None]
  - PENIS DISORDER [None]
  - POOR QUALITY SLEEP [None]
  - PREMATURE EJACULATION [None]
  - PROCTALGIA [None]
  - QUALITY OF LIFE DECREASED [None]
  - SENSORY DISTURBANCE [None]
  - SEXUAL DYSFUNCTION [None]
